FAERS Safety Report 10112245 (Version 1)
Quarter: 2014Q2

REPORT INFORMATION
  Report Type: Other
  Country: GB (occurrence: GB)
  Receive Date: 20140425
  Receipt Date: 20140425
  Transmission Date: 20141212
  Serious: Yes (Other)
  Sender: FDA-Public Use
  Company Number: GB-ASTELLAS-2014EU004064

PATIENT
  Age: 73 Year
  Sex: Male
  Weight: 61 kg

DRUGS (6)
  1. YM178 [Suspect]
     Indication: POLLAKIURIA
     Route: 065
     Dates: start: 20140114
  2. AMANTADINE [Concomitant]
     Indication: PARKINSON^S DISEASE
     Route: 065
  3. CO-CARELDOPA [Concomitant]
     Indication: PARKINSON^S DISEASE
     Route: 065
  4. CO-CARELDOPA [Concomitant]
     Dosage: 2 UNK, UNK
     Route: 065
  5. LAXIDO                             /06401201/ [Concomitant]
     Indication: CONSTIPATION
     Route: 065
  6. PARACETAMOL [Concomitant]
     Indication: PAIN
     Route: 065

REACTIONS (1)
  - Confusional state [Not Recovered/Not Resolved]
